FAERS Safety Report 9836142 (Version 1)
Quarter: 2014Q1

REPORT INFORMATION
  Report Type: Spontaneous
  Country: NO (occurrence: NO)
  Receive Date: 20140123
  Receipt Date: 20140123
  Transmission Date: 20141002
  Serious: Yes (Other)
  Sender: FDA-Public Use
  Company Number: NO-PFIZER INC-2014020589

PATIENT
  Sex: 0

DRUGS (1)
  1. CHAMPIX [Suspect]

REACTIONS (1)
  - Polyneuropathy [Unknown]
